FAERS Safety Report 25500334 (Version 1)
Quarter: 2025Q3

REPORT INFORMATION
  Report Type: Spontaneous
  Country: ET (occurrence: ET)
  Receive Date: 20250701
  Receipt Date: 20250701
  Transmission Date: 20251021
  Serious: Yes (Other)
  Sender: B. BRAUN MEDICAL INC.
  Company Number: ET-B. Braun Medical Inc.-ET-BBM-202502459

PATIENT
  Age: 7 Month
  Sex: Female

DRUGS (13)
  1. CEFTRIAXONE [Suspect]
     Active Substance: CEFTRIAXONE
     Indication: Pyrexia
  2. CEFTAZIDIME [Suspect]
     Active Substance: CEFTAZIDIME
     Indication: Pneumonia
  3. MEROPENEM [Suspect]
     Active Substance: MEROPENEM
     Indication: Pneumonia
  4. CEFEPIME [Suspect]
     Active Substance: CEFEPIME HYDROCHLORIDE
     Indication: Pneumonia
  5. AMPICILLIN [Suspect]
     Active Substance: AMPICILLIN
  6. VANCOMYCIN [Suspect]
     Active Substance: VANCOMYCIN
  7. CIPROFLOXACIN [Suspect]
     Active Substance: CIPROFLOXACIN
  8. ARTESUNATE [Concomitant]
     Active Substance: ARTESUNATE
  9. PYRIDOXINE [Concomitant]
     Active Substance: PYRIDOXINE
  10. RIFAMPIN [Concomitant]
     Active Substance: RIFAMPIN
  11. ISONIAZID [Concomitant]
     Active Substance: ISONIAZID
  12. PYRAZINAMIDE [Concomitant]
     Active Substance: PYRAZINAMIDE
  13. ETHAMBUTOL [Concomitant]
     Active Substance: ETHAMBUTOL HYDROCHLORIDE

REACTIONS (1)
  - Fungaemia [Recovered/Resolved]
